FAERS Safety Report 8364383-2 (Version None)
Quarter: 2012Q2

REPORT INFORMATION
  Report Type: 
  Country: None (occurrence: None)
  Receive Date: 20120516
  Receipt Date: 20120416
  Transmission Date: 20120825
  Serious: Yes (Death, Other)
  Sender: FDA-Public Use
  Company Number: PHHY2012DK039840

PATIENT
  Age: 65 Year
  Sex: Female

DRUGS (1)
  1. LETROZOLE [Suspect]
     Dosage: 2.5 MG, DAILY

REACTIONS (20)
  - JAUNDICE [None]
  - RASH ERYTHEMATOUS [None]
  - PANCREATIC NEOPLASM [None]
  - BLOOD BILIRUBIN INCREASED [None]
  - HEPATIC ENZYME INCREASED [None]
  - NEOPLASM MALIGNANT [None]
  - WEIGHT DECREASED [None]
  - ADENOCARCINOMA PANCREAS [None]
  - DEATH [None]
  - GENERAL PHYSICAL HEALTH DETERIORATION [None]
  - JAUNDICE CHOLESTATIC [None]
  - SEPSIS [None]
  - SKIN CANCER [None]
  - ABDOMINAL TENDERNESS [None]
  - ABDOMINAL DISCOMFORT [None]
  - LYMPHADENOPATHY [None]
  - SKIN PLAQUE [None]
  - SKIN LESION [None]
  - METASTASES TO LIVER [None]
  - ABDOMINAL PAIN [None]
